FAERS Safety Report 9735725 (Version 1)
Quarter: 2013Q4

REPORT INFORMATION
  Report Type: Spontaneous
  Country: US (occurrence: None)
  Receive Date: 20131204
  Receipt Date: 20131204
  Transmission Date: 20140711
  Serious: Yes (Other)
  Sender: FDA-Public Use
  Company Number: 2013P1021475

PATIENT
  Age: 13 Year
  Sex: Female
  Weight: 54.43 kg

DRUGS (4)
  1. MYORISAN [Suspect]
     Indication: ACNE
     Route: 048
     Dates: start: 20131019, end: 20131028
  2. VITAMIN D [Concomitant]
  3. PROBIOTIC [Concomitant]
  4. MULTIVITAMIN [Concomitant]

REACTIONS (7)
  - Lip dry [None]
  - Lip exfoliation [None]
  - Chapped lips [None]
  - Cheilitis [None]
  - Arthralgia [None]
  - Lethargy [None]
  - Depressed mood [None]
